FAERS Safety Report 5235650-6 (Version None)
Quarter: 2007Q1

REPORT INFORMATION
  Report Type: 
  Country: None (occurrence: None)
  Receive Date: 20070212
  Receipt Date: 20070206
  Transmission Date: 20070707
  Serious: Yes (Hospitalization)
  Sender: FDA-Public Use
  Company Number: JP-JPN-A200605221

PATIENT
  Age: 51 Year
  Sex: Male
  Weight: 64 kg

DRUGS (5)
  1. ZOVIRAX [Suspect]
     Indication: ENCEPHALITIS HERPES
     Dosage: 600MG THREE TIMES PER DAY
     Route: 042
     Dates: start: 20061123, end: 20061128
  2. LOXONIN [Suspect]
     Indication: PAIN
     Dosage: 60MG PER DAY
     Route: 048
     Dates: start: 20061125, end: 20061125
  3. CALONAL [Concomitant]
     Indication: PAIN
     Dosage: 400MG PER DAY
     Route: 048
     Dates: start: 20061127, end: 20061127
  4. HUMALOG [Concomitant]
     Indication: DRUG USE FOR UNKNOWN INDICATION
     Route: 058
  5. HUMACART [Concomitant]
     Indication: DRUG USE FOR UNKNOWN INDICATION
     Route: 058

REACTIONS (4)
  - BLOOD CREATININE INCREASED [None]
  - MALAISE [None]
  - PYREXIA [None]
  - RENAL FAILURE ACUTE [None]
